FAERS Safety Report 4664563-3 (Version None)
Quarter: 2005Q2

REPORT INFORMATION
  Report Type: 
  Country: None (occurrence: None)
  Receive Date: 20050518
  Receipt Date: 20050509
  Transmission Date: 20051028
  Serious: Yes (Hospitalization, Other)
  Sender: FDA-Public Use
  Company Number: US-GLAXOSMITHKLINE-A0558618A

PATIENT
  Age: 18 Year
  Sex: Male

DRUGS (1)
  1. PAXIL [Suspect]
     Indication: DRUG USE FOR UNKNOWN INDICATION
     Route: 048
     Dates: start: 20011201

REACTIONS (9)
  - CONVULSION [None]
  - DELUSION [None]
  - DRUG WITHDRAWAL SYNDROME [None]
  - INSOMNIA [None]
  - PARAESTHESIA [None]
  - PYREXIA [None]
  - SPEECH DISORDER [None]
  - SUICIDAL IDEATION [None]
  - THINKING ABNORMAL [None]
